FAERS Safety Report 17946132 (Version 1)
Quarter: 2020Q2

REPORT INFORMATION
  Report Type: Other
  Country: PT (occurrence: PT)
  Receive Date: 20200626
  Receipt Date: 20200626
  Transmission Date: 20200714
  Serious: Yes (Hospitalization, Other)
  Sender: FDA-Public Use
  Company Number: PT-NUVO PHARMACEUTICALS INC-2086701

PATIENT
  Age: 15 Year
  Sex: Male

DRUGS (8)
  1. DIAZEPAM. [Suspect]
     Active Substance: DIAZEPAM
     Indication: TOURETTE^S DISORDER
     Route: 065
  2. TIAPRIDE [Suspect]
     Active Substance: TIAPRIDE
     Route: 065
  3. SERTRALINE [Suspect]
     Active Substance: SERTRALINE HYDROCHLORIDE
     Route: 065
  4. MIDAZOLAM. [Suspect]
     Active Substance: MIDAZOLAM
     Route: 040
  5. LORAZEPAM. [Suspect]
     Active Substance: LORAZEPAM
     Route: 065
  6. TETRABENAZINE. [Suspect]
     Active Substance: TETRABENAZINE
     Route: 065
  7. CLONIDINE. [Suspect]
     Active Substance: CLONIDINE
     Route: 065
  8. ARIPIPRAZOLE. [Suspect]
     Active Substance: ARIPIPRAZOLE
     Route: 065

REACTIONS (6)
  - Neutrophilia [Unknown]
  - Neuroleptic malignant syndrome [Unknown]
  - Catatonia [Unknown]
  - Leukocytosis [Unknown]
  - Product use in unapproved indication [Unknown]
  - Parkinsonism [Unknown]
